FAERS Safety Report 4450574-X (Version None)
Quarter: 2004Q3

REPORT INFORMATION
  Report Type: 
  Country: None (occurrence: None)
  Receive Date: 20040914
  Receipt Date: 20040831
  Transmission Date: 20050211
  Serious: No
  Sender: FDA-Public Use
  Company Number: 04P-163-0270815-00

PATIENT
  Age: 56 Year
  Sex: Female
  Weight: 56.6996 kg

DRUGS (6)
  1. HUMIRA [Suspect]
     Indication: RHEUMATOID ARTHRITIS
     Dosage: 40 MG, 1 IN 2 WK, SUBCUTANEOUS
     Route: 058
     Dates: start: 20040720
  2. PREDNISONE [Concomitant]
  3. ACETAMINOPHEN W/ CODEINE [Concomitant]
  4. RANITIDINE [Concomitant]
  5. VERAPAMIL [Concomitant]
  6. METHOTREXATE [Concomitant]

REACTIONS (7)
  - BURNING SENSATION [None]
  - CONTUSION [None]
  - HAEMORRHAGE [None]
  - HERPES SIMPLEX [None]
  - INFUSION SITE PAIN [None]
  - INJECTION SITE BURNING [None]
  - SKIN LACERATION [None]
